FAERS Safety Report 11272011 (Version 1)
Quarter: 2015Q3

REPORT INFORMATION
  Report Type: Spontaneous
  Country: DE (occurrence: DE)
  Receive Date: 20150715
  Receipt Date: 20150715
  Transmission Date: 20151125
  Serious: Yes (Congenital Anomaly)
  Sender: FDA-Public Use
  Company Number: DE-SUN PHARMACEUTICAL INDUSTRIES LTD-2015RR-100211

PATIENT

DRUGS (4)
  1. JOHANNISKRAUT [Concomitant]
     Indication: ANXIETY DISORDER
     Dosage: HOMEOPATHIC PREPARATION C30
     Route: 064
     Dates: start: 20140911, end: 20141022
  2. MISODEL [Concomitant]
     Indication: LABOUR INDUCTION
     Dosage: UNK
     Route: 064
     Dates: start: 20150203, end: 20150203
  3. CITALOPRAM [Suspect]
     Active Substance: CITALOPRAM HYDROBROMIDE
     Indication: DEPRESSION
     Dosage: PROBABLY 10 MG/D
     Route: 064
     Dates: start: 20141022, end: 20150203
  4. FEMIBION SCHWANGERSCHAFT 1 [Concomitant]
     Indication: PROPHYLAXIS OF NEURAL TUBE DEFECT
     Dosage: 0.8 MG, DAILY
     Route: 064
     Dates: start: 20140421, end: 20140919

REACTIONS (1)
  - Pyloric stenosis [Recovered/Resolved with Sequelae]
